FAERS Safety Report 6304232-7 (Version None)
Quarter: 2009Q3

REPORT INFORMATION
  Report Type: 
  Country: None (occurrence: None)
  Receive Date: 20090811
  Receipt Date: 20090730
  Transmission Date: 20100115
  Serious: Yes (Hospitalization)
  Sender: FDA-Public Use
  Company Number: US-JNJFOC-20090605002

PATIENT
  Sex: Female

DRUGS (5)
  1. REMICADE [Suspect]
     Route: 042
  2. REMICADE [Suspect]
     Route: 042
  3. REMICADE [Suspect]
     Indication: RHEUMATOID ARTHRITIS
     Route: 042
  4. VALIUM [Concomitant]
     Indication: DRUG USE FOR UNKNOWN INDICATION
  5. LITHIUM CARBONATE [Concomitant]
     Indication: BIPOLAR DISORDER

REACTIONS (9)
  - AMNESIA [None]
  - ANAEMIA [None]
  - BIPOLAR DISORDER [None]
  - OVERDOSE [None]
  - RENAL DISORDER [None]
  - SKIN DISCOLOURATION [None]
  - THERAPEUTIC AGENT TOXICITY [None]
  - THROMBOSIS [None]
  - THYROID FUNCTION TEST ABNORMAL [None]
